FAERS Safety Report 23070176 (Version 2)
Quarter: 2024Q1

REPORT INFORMATION
  Report Type: Spontaneous
  Country: CA (occurrence: CA)
  Receive Date: 20231016
  Receipt Date: 20240328
  Transmission Date: 20240409
  Serious: Yes (Hospitalization, Other)
  Sender: FDA-Public Use
  Company Number: CA-PFIZER INC-PV202300168339

PATIENT
  Age: 30 Year
  Sex: Female
  Weight: 80 kg

DRUGS (2)
  1. LORBRENA [Suspect]
     Active Substance: LORLATINIB
     Dosage: UNK
     Dates: start: 20220720
  2. LORBRENA [Suspect]
     Active Substance: LORLATINIB
     Dosage: DOSE REDUCED TO 25 MG ONCE A DAY FOR 2 WEEKS THEN 50 MG ONCE A DAY FOR 2 WEEKS
     Dates: start: 2023

REACTIONS (3)
  - Pancreatitis [Unknown]
  - Diabetes mellitus [Unknown]
  - Off label use [Unknown]

NARRATIVE: CASE EVENT DATE: 20230101
